FAERS Safety Report 24339757 (Version 2)
Quarter: 2024Q4

REPORT INFORMATION
  Report Type: Spontaneous
  Country: PT (occurrence: PT)
  Receive Date: 20240919
  Receipt Date: 20241005
  Transmission Date: 20250114
  Serious: Yes (Hospitalization)
  Sender: TEVA
  Company Number: PT-TEVA-VS-3242691

PATIENT
  Age: 47 Year
  Sex: Female

DRUGS (4)
  1. FLUOROURACIL [Suspect]
     Active Substance: FLUOROURACIL
     Indication: Ductal adenocarcinoma of pancreas
     Dosage: PART OF FOLFIRINOX REGIMEN
     Route: 065
     Dates: start: 20221227
  2. OXALIPLATIN [Suspect]
     Active Substance: OXALIPLATIN
     Indication: Ductal adenocarcinoma of pancreas
     Dosage: PART OF FOLFIRINOX REGIMEN
     Route: 065
     Dates: start: 20221227
  3. IRINOTECAN [Suspect]
     Active Substance: IRINOTECAN
     Indication: Ductal adenocarcinoma of pancreas
     Dosage: PART OF FOLFIRINOX REGIMEN
     Route: 065
     Dates: start: 20221227
  4. LEUCOVORIN [Suspect]
     Active Substance: LEUCOVORIN\LEUCOVORIN CALCIUM
     Indication: Ductal adenocarcinoma of pancreas
     Dosage: PART OF FOLFIRINOX REGIMEN
     Route: 065
     Dates: start: 20221227

REACTIONS (3)
  - Cytotoxic lesions of corpus callosum [Recovered/Resolved]
  - Neurotoxicity [Recovered/Resolved]
  - Ophthalmoplegia [Recovered/Resolved]

NARRATIVE: CASE EVENT DATE: 20221201
